FAERS Safety Report 9335038 (Version 1)
Quarter: 2013Q2

REPORT INFORMATION
  Report Type: Report from Study
  Country: AU (occurrence: AU)
  Receive Date: 20130606
  Receipt Date: 20130606
  Transmission Date: 20140414
  Serious: Yes (Hospitalization)
  Sender: FDA-Public Use
  Company Number: AU-ASTRAZENECA-2013SE24678

PATIENT
  Age: 80 Year
  Sex: Male

DRUGS (2)
  1. ZOLADEX [Suspect]
     Dosage: DOSE UNSPECIFIED
     Route: 058
     Dates: start: 20090701
  2. MEDICATIONS FOR HIGH BLOOD PRESSURE [Concomitant]

REACTIONS (2)
  - Fall [Not Recovered/Not Resolved]
  - Hypotension [Unknown]
